FAERS Safety Report 8163110-1 (Version None)
Quarter: 2012Q1

REPORT INFORMATION
  Report Type: 
  Country: None (occurrence: None)
  Receive Date: 20120224
  Receipt Date: 20110203
  Transmission Date: 20120608
  Serious: No
  Sender: FDA-Public Use
  Company Number: US-PFIZER INC-K201100128

PATIENT
  Sex: Female

DRUGS (1)
  1. FLECTOR [Suspect]
     Indication: HEADACHE
     Dosage: 1 PATCH, SINGLE
     Route: 061
     Dates: start: 20110101, end: 20110101

REACTIONS (2)
  - DYSPNOEA [None]
  - DIZZINESS [None]
